FAERS Safety Report 25149356 (Version 2)
Quarter: 2025Q2

REPORT INFORMATION
  Report Type: Spontaneous
  Country: US (occurrence: US)
  Receive Date: 20250402
  Receipt Date: 20250410
  Transmission Date: 20250717
  Serious: Yes (Hospitalization, Other)
  Sender: ADVANZ PHARMA
  Company Number: US-MLMSERVICE-20250317-PI448752-00095-1

PATIENT

DRUGS (2)
  1. HYDROXYCHLOROQUINE [Suspect]
     Active Substance: HYDROXYCHLOROQUINE
     Indication: Rheumatoid arthritis
  2. ETANERCEPT [Concomitant]
     Active Substance: ETANERCEPT
     Indication: Rheumatoid arthritis
     Dosage: UNK, WEEKLY(UNK, QW)

REACTIONS (8)
  - Presyncope [Unknown]
  - Right ventricular dysfunction [Unknown]
  - Arrhythmia [Unknown]
  - Cardiotoxicity [Unknown]
  - Dizziness [Unknown]
  - Left ventricular hypertrophy [Unknown]
  - Cardiomyopathy [Unknown]
  - Ventricular tachycardia [Unknown]
